FAERS Safety Report 13816175 (Version 1)
Quarter: 2017Q3

REPORT INFORMATION
  Report Type: Spontaneous
  Country: US (occurrence: US)
  Receive Date: 20170731
  Receipt Date: 20170731
  Transmission Date: 20171127
  Serious: No
  Sender: FDA-Public Use
  Company Number: US-JNJFOC-20170223257

PATIENT
  Age: 54 Year
  Sex: Female
  Weight: 58.97 kg

DRUGS (8)
  1. ZYRTEC [Suspect]
     Active Substance: CETIRIZINE HYDROCHLORIDE
     Indication: MULTIPLE ALLERGIES
     Route: 048
  2. FISH OIL [Concomitant]
     Active Substance: FISH OIL
     Indication: NUTRITIONAL SUPPLEMENTATION
     Dosage: 4 YEARS
     Route: 065
  3. CINNAMON. [Concomitant]
     Active Substance: CINNAMON
     Indication: NUTRITIONAL SUPPLEMENTATION
     Dosage: 4 YEARS
     Route: 065
  4. ASCORBIC ACID. [Concomitant]
     Active Substance: ASCORBIC ACID
     Indication: NUTRITIONAL SUPPLEMENTATION
     Dosage: 4 YEARS
     Route: 065
  5. BENADRYL ALLERGY [Concomitant]
     Active Substance: DIPHENHYDRAMINE HYDROCHLORIDE
     Indication: PRURITUS
     Dosage: FEW WEEKS
     Route: 065
  6. GINGER. [Concomitant]
     Active Substance: GINGER
     Indication: NUTRITIONAL SUPPLEMENTATION
     Dosage: 4 YEARS
     Route: 065
  7. ZYRTEC [Suspect]
     Active Substance: CETIRIZINE HYDROCHLORIDE
     Indication: HYPERSENSITIVITY
     Route: 048
  8. VITAMIN D [Concomitant]
     Active Substance: CHOLECALCIFEROL
     Indication: NUTRITIONAL SUPPLEMENTATION
     Dosage: 4 YEARS
     Route: 065

REACTIONS (1)
  - Somnolence [Not Recovered/Not Resolved]
